FAERS Safety Report 8050082-3 (Version None)
Quarter: 2012Q1

REPORT INFORMATION
  Report Type: 
  Country: None (occurrence: None)
  Receive Date: 20120117
  Receipt Date: 20120112
  Transmission Date: 20120608
  Serious: Yes (Hospitalization, Other)
  Sender: FDA-Public Use
  Company Number: US-PFIZER INC-2011315244

PATIENT
  Sex: Male
  Weight: 103 kg

DRUGS (12)
  1. VITAMIN B-12 [Suspect]
     Dosage: UNK
  2. ASPIRIN [Concomitant]
     Indication: ANTICOAGULANT THERAPY
     Dosage: UNK
  3. PRILOSEC [Suspect]
     Dosage: 40 MG, 1X/DAY
     Route: 048
  4. TOPROL-XL [Suspect]
     Dosage: 50 MG, 1X/DAY
     Route: 048
  5. LIPITOR [Suspect]
     Indication: BLOOD CHOLESTEROL ABNORMAL
     Dosage: 40 MG, DAILY
     Route: 048
  6. ULTRAM [Suspect]
     Dosage: 50 MG, 1-2 TABLETS TWICE DAILY
     Route: 048
  7. LORTAB [Suspect]
     Dosage: [HYDROCODONE 5 MG/ ACETAMINOPHEN 500 MG], 1/2 TO 1 TABLET TWICE DAILY AS NEEDED
     Route: 048
  8. LISINOPRIL [Suspect]
     Dosage: 5 MG, 1X/DAY
     Route: 048
  9. MIRALAX [Suspect]
     Dosage: UNK
  10. DOCUSATE SODIUM [Suspect]
     Indication: CONSTIPATION
     Dosage: UNK
  11. VITAMIN D [Suspect]
     Dosage: UNK
  12. BACLOFEN [Suspect]
     Indication: MUSCLE RELAXANT THERAPY
     Dosage: 10 MG, 1/2 TO 1 TABLET UP TO TWICE DAILY
     Route: 048

REACTIONS (11)
  - VITAMIN B12 DEFICIENCY [None]
  - CHEST PAIN [None]
  - LUMBAR RADICULOPATHY [None]
  - DIZZINESS [None]
  - CORONARY ARTERY OCCLUSION [None]
  - ANGIOPATHY [None]
  - INSOMNIA [None]
  - MYALGIA [None]
  - HYPOAESTHESIA [None]
  - INTERMITTENT CLAUDICATION [None]
  - LIVER FUNCTION TEST ABNORMAL [None]
